FAERS Safety Report 24074692 (Version 1)
Quarter: 2024Q3

REPORT INFORMATION
  Report Type: Spontaneous
  Country: US (occurrence: US)
  Receive Date: 20240710
  Receipt Date: 20240710
  Transmission Date: 20241016
  Serious: No
  Sender: PIERRE FABRE MEDICAMENT
  Company Number: US-PFM-2023-07006

PATIENT
  Sex: Male
  Weight: 8.62 kg

DRUGS (8)
  1. HEMANGEOL [Suspect]
     Active Substance: PROPRANOLOL HYDROCHLORIDE
     Indication: Haemangioma
     Dosage: 0.4 ML, BID (2/DAY)
     Route: 048
     Dates: start: 20231103
  2. HEMANGEOL [Suspect]
     Active Substance: PROPRANOLOL HYDROCHLORIDE
     Dosage: 0.8 ML, BID (2/DAY)
     Route: 048
  3. HEMANGEOL [Suspect]
     Active Substance: PROPRANOLOL HYDROCHLORIDE
     Dosage: 1.2 ML, BID (2/DAY)
     Route: 048
  4. HEMANGEOL [Suspect]
     Active Substance: PROPRANOLOL HYDROCHLORIDE
     Dosage: 1.6 ML, BID (2/DAY)
     Route: 048
  5. HEMANGEOL [Suspect]
     Active Substance: PROPRANOLOL HYDROCHLORIDE
     Dosage: 1.9 ML, BID (2/DAY)
     Route: 048
  6. HEMANGEOL [Suspect]
     Active Substance: PROPRANOLOL HYDROCHLORIDE
     Dosage: 2.2 ML, BID (2/DAY)
     Route: 048
  7. HEMANGEOL [Suspect]
     Active Substance: PROPRANOLOL HYDROCHLORIDE
     Dosage: 3 ML, BID (2/DAY)
     Route: 048
  8. HEMANGEOL [Suspect]
     Active Substance: PROPRANOLOL HYDROCHLORIDE
     Dosage: 3.4 ML, BID (2/DAY)
     Route: 048

REACTIONS (4)
  - Tooth discolouration [Recovered/Resolved]
  - Constipation [Unknown]
  - Drug titration error [Unknown]
  - Off label use [Unknown]
